FAERS Safety Report 7440697-5 (Version None)
Quarter: 2011Q2

REPORT INFORMATION
  Report Type: 
  Country: None (occurrence: None)
  Receive Date: 20110427
  Receipt Date: 20110418
  Transmission Date: 20111010
  Serious: Yes (Hospitalization)
  Sender: FDA-Public Use
  Company Number: US-AMGEN-USASP2011020469

PATIENT
  Age: 84 Year
  Sex: Male

DRUGS (1)
  1. EPOGEN [Suspect]
     Indication: PRODUCT USED FOR UNKNOWN INDICATION

REACTIONS (1)
  - GASTROINTESTINAL PERFORATION [None]
